FAERS Safety Report 9719790 (Version 2)
Quarter: 2013Q4

REPORT INFORMATION
  Report Type: Spontaneous
  Country: GB (occurrence: GB)
  Receive Date: 20131128
  Receipt Date: 20131128
  Transmission Date: 20140711
  Serious: Yes (Other)
  Sender: FDA-Public Use
  Company Number: GB-009507513-1308GBR007366

PATIENT
  Age: 50 Year
  Sex: Male
  Weight: 84 kg

DRUGS (3)
  1. VICTRELIS [Suspect]
     Indication: HEPATITIS C
     Dosage: 800 MG TDS
     Route: 048
     Dates: start: 20130415, end: 20130927
  2. REBETOL [Suspect]
     Indication: HEPATITIS C
     Dosage: DAILY DOSE:1200MG
     Route: 048
     Dates: start: 20130415, end: 20130927
  3. INTERFERON ALFA-2B [Suspect]
     Dosage: DAILY DOSE:150MG
     Dates: start: 20130415, end: 20130927

REACTIONS (1)
  - Neuropathy peripheral [Recovered/Resolved]
